FAERS Safety Report 22367509 (Version 3)
Quarter: 2023Q2

REPORT INFORMATION
  Report Type: Report from Study
  Country: US (occurrence: US)
  Receive Date: 20230525
  Receipt Date: 20230531
  Transmission Date: 20230722
  Serious: No
  Sender: FDA-Public Use
  Company Number: US-002147023-NVSC2023US112813

PATIENT
  Age: 30 Year
  Sex: Female

DRUGS (3)
  1. KESIMPTA [Suspect]
     Active Substance: OFATUMUMAB
     Indication: Multiple sclerosis
     Dosage: 20 MG, QMO
     Route: 058
     Dates: start: 20210514
  2. KESIMPTA [Suspect]
     Active Substance: OFATUMUMAB
     Dosage: 20 MG, QMO
     Route: 058
  3. KESIMPTA [Suspect]
     Active Substance: OFATUMUMAB
     Dosage: UNK
     Route: 065

REACTIONS (8)
  - COVID-19 [Recovered/Resolved]
  - Pyrexia [Recovered/Resolved]
  - Rosacea [Not Recovered/Not Resolved]
  - Erythema [Not Recovered/Not Resolved]
  - COVID-19 [Recovered/Resolved]
  - Oral herpes [Recovering/Resolving]
  - Thyroid disorder [Unknown]
  - Nasopharyngitis [Unknown]

NARRATIVE: CASE EVENT DATE: 20220103
